FAERS Safety Report 23421429 (Version 1)
Quarter: 2024Q1

REPORT INFORMATION
  Report Type: Spontaneous
  Country: US (occurrence: None)
  Receive Date: 20240118
  Receipt Date: 20240118
  Transmission Date: 20240409
  Serious: Yes (unspecified)
  Sender: FDA-Public Use
  Company Number: None

PATIENT
  Age: 69 Year
  Sex: Female
  Weight: 47.7 kg

DRUGS (1)
  1. GAMMAGARD S/D [Suspect]
     Active Substance: HUMAN IMMUNOGLOBULIN G
     Indication: COVID-19
     Dosage: OTHER FREQUENCY : Q 4 WEEKS;?
     Route: 041
     Dates: start: 20230801, end: 20240118

REACTIONS (3)
  - Back pain [None]
  - Renal pain [None]
  - Infusion related reaction [None]

NARRATIVE: CASE EVENT DATE: 20240118
